FAERS Safety Report 5798994-5 (Version None)
Quarter: 2008Q3

REPORT INFORMATION
  Report Type: 
  Country: None (occurrence: None)
  Receive Date: 20080702
  Receipt Date: 20080417
  Transmission Date: 20090109
  Serious: Yes (Other)
  Sender: FDA-Public Use
  Company Number: US-BRISTOL-MYERS SQUIBB COMPANY-14001937

PATIENT
  Age: 67 Year
  Sex: Female

DRUGS (7)
  1. SPRYCEL [Suspect]
     Indication: CHRONIC MYELOID LEUKAEMIA
     Route: 048
     Dates: start: 20060601, end: 20071201
  2. TRICOR [Concomitant]
  3. GLYBURIDE [Concomitant]
  4. LEXAPRO [Concomitant]
  5. PROTONIX [Concomitant]
  6. CALTRATE [Concomitant]
  7. M.V.I. [Concomitant]

REACTIONS (1)
  - PULMONARY OEDEMA [None]
